FAERS Safety Report 8377552-2 (Version None)
Quarter: 2012Q2

REPORT INFORMATION
  Report Type: 
  Country: None (occurrence: None)
  Receive Date: 20120522
  Receipt Date: 20120510
  Transmission Date: 20120825
  Serious: Yes (Hospitalization)
  Sender: FDA-Public Use
  Company Number: JP-UCBSA-050540

PATIENT
  Age: 57 Year
  Sex: Female

DRUGS (2)
  1. CIMZIA [Suspect]
     Dosage: RA0006: 400 MG/2 WEEKS -LOADING DOSE; 200 MG/2 WEEKS
     Route: 058
     Dates: start: 20090113, end: 20090728
  2. CIMZIA [Suspect]
     Indication: RHEUMATOID ARTHRITIS
     Route: 058
     Dates: start: 20090728

REACTIONS (1)
  - COMPUTERISED TOMOGRAM THORAX ABNORMAL [None]
